FAERS Safety Report 16883633 (Version 1)
Quarter: 2019Q4

REPORT INFORMATION
  Report Type: Report from Study
  Country: DE (occurrence: DE)
  Receive Date: 20191004
  Receipt Date: 20191004
  Transmission Date: 20200122
  Serious: Yes (Hospitalization)
  Sender: FDA-Public Use
  Company Number: DE-TEVA-2019-DE-1117732

PATIENT
  Age: 66 Year
  Sex: Female
  Weight: 70 kg

DRUGS (16)
  1. BEVACIZUMAB. [Suspect]
     Active Substance: BEVACIZUMAB
     Dosage: 1050 3 WEEKS
     Route: 042
     Dates: start: 20120914
  2. FORTECORTIN [DEXAMETHASONE] [Concomitant]
     Active Substance: DEXAMETHASONE
     Dosage: 20 MG 91 DAYS
     Route: 042
     Dates: start: 20120814, end: 20121112
  3. CARBOPLATIN. [Suspect]
     Active Substance: CARBOPLATIN
     Indication: OVARIAN CANCER
     Dosage: 450 MG
     Route: 042
     Dates: start: 20121112
  4. PACLITAXEL. [Suspect]
     Active Substance: PACLITAXEL
     Dosage: 280 MG
     Route: 042
  5. PACLITAXEL. [Suspect]
     Active Substance: PACLITAXEL
     Dosage: 300 MG
     Route: 042
     Dates: start: 20120904
  6. PACLITAXEL. [Suspect]
     Active Substance: PACLITAXEL
     Dosage: 300 MG 3 WEEKS
     Route: 042
     Dates: start: 20121001
  7. VITAMIN B6 [Concomitant]
     Active Substance: PYRIDOXINE HYDROCHLORIDE
     Indication: PARAESTHESIA
     Dosage: 40 MG 19 DAYS
     Route: 048
     Dates: start: 20121203, end: 20121221
  8. RANITIC [Concomitant]
     Active Substance: RANITIDINE HYDROCHLORIDE
     Dosage: 50 MG 91 DAYS
     Route: 042
     Dates: start: 20120814, end: 20121112
  9. CARBOPLATIN. [Suspect]
     Active Substance: CARBOPLATIN
     Dosage: 430 MG
     Route: 042
     Dates: start: 20121022
  10. AVASTIN [Suspect]
     Active Substance: BEVACIZUMAB
     Indication: OVARIAN CANCER
     Dosage: 885 MG 3 WEEKS
     Route: 042
     Dates: start: 20121001
  11. BEVACIZUMAB. [Suspect]
     Active Substance: BEVACIZUMAB
     Dosage: 1050 MG 3 WEEKS
     Route: 042
     Dates: start: 20120904
  12. KEVATRIL [Concomitant]
     Active Substance: GRANISETRON HYDROCHLORIDE
     Dosage: 1 MG 91 DAYS
     Route: 042
     Dates: start: 20120814, end: 20121112
  13. FENISTIL [Concomitant]
     Active Substance: DIMETHINDENE
     Dosage: 4 MG 91 DAYS
     Route: 042
     Dates: start: 20120814, end: 20121112
  14. PACLITAXEL. [Suspect]
     Active Substance: PACLITAXEL
     Dosage: 295 MG
     Route: 042
     Dates: start: 20121022
  15. CARBOPLATIN. [Suspect]
     Active Substance: CARBOPLATIN
     Dosage: 430 MG
     Route: 042
     Dates: start: 20120904
  16. CARBOPLATIN. [Suspect]
     Active Substance: CARBOPLATIN
     Dosage: 430 MG 70 DAYS
     Dates: start: 20120814, end: 20121022

REACTIONS (2)
  - Mechanical ileus [Recovered/Resolved]
  - Weight decreased [Recovered/Resolved]

NARRATIVE: CASE EVENT DATE: 20120909
